FAERS Safety Report 9472272 (Version 1)
Quarter: 2013Q3

REPORT INFORMATION
  Report Type: Spontaneous
  Country: US (occurrence: None)
  Receive Date: 20130821
  Receipt Date: 20130821
  Transmission Date: 20140515
  Serious: No
  Sender: FDA-Public Use
  Company Number: None

PATIENT
  Sex: 0

DRUGS (3)
  1. PANTOPRAZOLE [Suspect]
     Dosage: 4 DOSES
     Route: 048
  2. PRAVASTATIN [Suspect]
     Dosage: 4 DOSES
     Route: 048
  3. LIPITOR [Concomitant]

REACTIONS (2)
  - Drug dispensing error [None]
  - Medication error [None]
